FAERS Safety Report 24290582 (Version 1)
Quarter: 2024Q3

REPORT INFORMATION
  Report Type: Spontaneous
  Country: JP (occurrence: JP)
  Receive Date: 20240906
  Receipt Date: 20240906
  Transmission Date: 20241017
  Serious: Yes (Other)
  Sender: RANBAXY
  Company Number: JP-SUN PHARMACEUTICAL INDUSTRIES LTD-2024R1-466200

PATIENT
  Age: 73 Year
  Sex: Female

DRUGS (5)
  1. VINCRISTINE [Suspect]
     Active Substance: VINCRISTINE
     Indication: Follicular lymphoma
     Dosage: UNK
     Route: 065
  2. METHOTREXATE [Suspect]
     Active Substance: METHOTREXATE
     Indication: Follicular lymphoma
     Dosage: UNK
     Route: 065
  3. PROCARBAZINE [Suspect]
     Active Substance: PROCARBAZINE
     Indication: Follicular lymphoma
     Dosage: UNK
     Route: 065
  4. RITUXIMAB [Suspect]
     Active Substance: RITUXIMAB
     Indication: Follicular lymphoma
     Dosage: UNK
     Route: 065
  5. METHOTREXATE [Suspect]
     Active Substance: METHOTREXATE
     Indication: Follicular lymphoma
     Dosage: UNK
     Route: 037

REACTIONS (1)
  - Seizure [Recovering/Resolving]
